FAERS Safety Report 22637895 (Version 1)
Quarter: 2023Q2

REPORT INFORMATION
  Report Type: Report from Study
  Country: UY (occurrence: UY)
  Receive Date: 20230626
  Receipt Date: 20230626
  Transmission Date: 20230721
  Serious: Yes (Other)
  Sender: FDA-Public Use
  Company Number: UY-ABBVIE-5301829

PATIENT
  Age: 7 Year
  Sex: Female

DRUGS (1)
  1. HUMIRA [Suspect]
     Active Substance: ADALIMUMAB
     Indication: Juvenile idiopathic arthritis
     Route: 058
     Dates: start: 20220407

REACTIONS (2)
  - Tonsillar disorder [Unknown]
  - Adenoidal hypertrophy [Unknown]

NARRATIVE: CASE EVENT DATE: 20230616
